FAERS Safety Report 7565874-4 (Version None)
Quarter: 2011Q2

REPORT INFORMATION
  Report Type: 
  Country: None (occurrence: None)
  Receive Date: 20110623
  Receipt Date: 20110619
  Transmission Date: 20111010
  Serious: No
  Sender: FDA-Public Use
  Company Number: US-PFIZER INC-2011134378

PATIENT
  Sex: Male

DRUGS (2)
  1. INSULIN [Concomitant]
     Dosage: UNK
  2. VIAGRA [Suspect]
     Indication: ERECTILE DYSFUNCTION
     Dosage: 50 MG, UNK
     Route: 048
     Dates: start: 20110618

REACTIONS (1)
  - DRUG EFFECT DELAYED [None]
